FAERS Safety Report 24739493 (Version 1)
Quarter: 2024Q4

REPORT INFORMATION
  Report Type: Spontaneous
  Country: FR (occurrence: FR)
  Receive Date: 20241216
  Receipt Date: 20241216
  Transmission Date: 20250114
  Serious: Yes (Disabling)
  Sender: TEVA
  Company Number: None

PATIENT
  Age: 26 Year
  Sex: Female
  Weight: 62 kg

DRUGS (10)
  1. VINCRISTINE [Suspect]
     Active Substance: VINCRISTINE
     Indication: Malignant oligodendroglioma
     Dosage: TIME INTERVAL: CYCLICAL: C4J29
     Route: 042
     Dates: start: 20240628, end: 20240628
  2. VINCRISTINE [Suspect]
     Active Substance: VINCRISTINE
     Indication: Malignant oligodendroglioma
     Dosage: TIME INTERVAL: CYCLICAL: C3J8
     Route: 042
     Dates: start: 20240402, end: 20240402
  3. VINCRISTINE [Suspect]
     Active Substance: VINCRISTINE
     Indication: Malignant oligodendroglioma
     Dosage: TIME INTERVAL: CYCLICAL: C3J29
     Route: 042
     Dates: start: 20240423, end: 20240423
  4. VINCRISTINE [Suspect]
     Active Substance: VINCRISTINE
     Indication: Malignant oligodendroglioma
     Dosage: TIME INTERVAL: CYCLICAL: C2J8
     Route: 042
     Dates: start: 20240207, end: 20240207
  5. VINCRISTINE [Suspect]
     Active Substance: VINCRISTINE
     Indication: Malignant oligodendroglioma
     Dosage: TIME INTERVAL: CYCLICAL: C1J8, VINCRISTINE (SULFATE)
     Route: 042
     Dates: start: 20231227, end: 20231227
  6. VINCRISTINE [Suspect]
     Active Substance: VINCRISTINE
     Indication: Malignant oligodendroglioma
     Dosage: TIME INTERVAL: CYCLICAL: C4J8
     Route: 042
     Dates: start: 20240524, end: 20240524
  7. VINCRISTINE [Suspect]
     Active Substance: VINCRISTINE
     Indication: Malignant oligodendroglioma
     Dosage: TIME INTERVAL: CYCLICAL: C1J29
     Route: 042
     Dates: start: 20240117, end: 20240117
  8. KEPPRA [Suspect]
     Active Substance: LEVETIRACETAM
     Indication: Epilepsy
     Dosage: 2 TIMES A DAY
     Route: 048
     Dates: start: 202305
  9. LOMUSTINE [Concomitant]
     Active Substance: LOMUSTINE
     Indication: Malignant oligodendroglioma
     Dosage: TIME INTERVAL: CYCLICAL: C1J1 4 CAPSULES,
     Route: 048
     Dates: start: 20231220
  10. PROCARBAZINE HYDROCHLORIDE [Suspect]
     Active Substance: PROCARBAZINE HYDROCHLORIDE
     Indication: Malignant oligodendroglioma
     Dosage: TIME INTERVAL: CYCLICAL: 1/DAY OVER 14 DAYS C1D8-C1D21,
     Route: 048
     Dates: start: 20231227, end: 20240415

REACTIONS (1)
  - Neuropathy peripheral [Not Recovered/Not Resolved]

NARRATIVE: CASE EVENT DATE: 20231227
